FAERS Safety Report 6510319-6 (Version None)
Quarter: 2009Q4

REPORT INFORMATION
  Report Type: 
  Country: None (occurrence: None)
  Receive Date: 20091222
  Receipt Date: 20090925
  Transmission Date: 20100525
  Serious: No
  Sender: FDA-Public Use
  Company Number: US-ASTRAZENECA-2009SE15706

PATIENT
  Age: 63 Year
  Sex: Female
  Weight: 55.8 kg

DRUGS (4)
  1. CRESTOR [Suspect]
     Route: 048
  2. NAUSEA [Concomitant]
  3. BP PILLS [Concomitant]
  4. NERVE PILLS [Concomitant]

REACTIONS (2)
  - DIARRHOEA [None]
  - NAUSEA [None]
